FAERS Safety Report 5133966-5 (Version None)
Quarter: 2006Q4

REPORT INFORMATION
  Report Type: 
  Country: None (occurrence: None)
  Receive Date: 20061018
  Receipt Date: 20061010
  Transmission Date: 20070319
  Serious: Yes (Other)
  Sender: FDA-Public Use
  Company Number: 2006124064

PATIENT
  Age: 2 Year
  Sex: Female

DRUGS (1)
  1. INFANTS' PEDICARE DECONGESTANT (PSEUDOEPHEDRINE) [Suspect]
     Dosage: AN ENTIRE BOTTLE ONCE, ORAL
     Route: 048
     Dates: start: 20061010, end: 20061010

REACTIONS (2)
  - ACCIDENTAL DRUG INTAKE BY CHILD [None]
  - SOMNOLENCE [None]
